FAERS Safety Report 8935826 (Version 1)
Quarter: 2012Q4

REPORT INFORMATION
  Report Type: 
  Country: JP (occurrence: JP)
  Receive Date: 20121130
  Receipt Date: 20121130
  Transmission Date: 20130627
  Serious: Yes (Other)
  Sender: FDA-Public Use
  Company Number: JP-JNJFOC-20121110478

PATIENT
  Age: 47 Year
  Sex: Male

DRUGS (2)
  1. INFLIXIMAB, RECOMBINANT [Suspect]
     Indication: PSORIATIC ARTHROPATHY
     Dosage: recived it for approximately 2 years (total 2600 mg)
     Route: 042
  2. METHOTREXATE [Concomitant]
     Indication: PSORIATIC ARTHROPATHY
     Dosage: for 3 years
     Route: 065

REACTIONS (1)
  - Mycobacterial infection [Recovered/Resolved]
